FAERS Safety Report 14184909 (Version 1)
Quarter: 2017Q4

REPORT INFORMATION
  Report Type: Spontaneous
  Country: ES (occurrence: ES)
  Receive Date: 20171113
  Receipt Date: 20171113
  Transmission Date: 20180321
  Serious: Yes (Other)
  Sender: FDA-Public Use
  Company Number: ES-NOVAST LABORATORIES, LTD-ES-2017NOV000068

PATIENT
  Age: 64 Year
  Sex: Female

DRUGS (2)
  1. ACETAZOLAMIDE. [Suspect]
     Active Substance: ACETAZOLAMIDE
     Indication: INTRAOCULAR PRESSURE INCREASED
     Route: 048
  2. SULFUR HEXAFLUORIDE [Concomitant]
     Active Substance: SULFUR HEXAFLUORIDE
     Indication: INTRAOCULAR LENS IMPLANT
     Dosage: 0.3 ML, END OF SURGERY

REACTIONS (3)
  - Choroidal detachment [Recovered/Resolved]
  - Hypotony of eye [Recovered/Resolved]
  - Graft complication [Recovered/Resolved]
